FAERS Safety Report 9395015 (Version 1)
Quarter: 2013Q3

REPORT INFORMATION
  Report Type: Spontaneous
  Country: US (occurrence: US)
  Receive Date: 20130711
  Receipt Date: 20130711
  Transmission Date: 20140515
  Serious: No
  Sender: FDA-Public Use
  Company Number: US-B.I. PHARMACEUTICALS,INC./RIDGEFIELD-2013-BI-19455BP

PATIENT
  Age: 55 Year
  Sex: Male
  Weight: 75 kg

DRUGS (6)
  1. COMBIVENT [Suspect]
     Indication: CHRONIC OBSTRUCTIVE PULMONARY DISEASE
     Dosage: STRENGTH: 20 MCG / 100 MCG; DAILY DOSE: 80 MCG / 400 MCG
     Route: 055
     Dates: start: 20130703
  2. COMBIVENT [Suspect]
     Indication: CHRONIC OBSTRUCTIVE PULMONARY DISEASE
     Dosage: STRENGTH: 18 MCG / 103 MCG; DAILY DOSE: 72 MCG / 412 MCG
     Route: 055
     Dates: start: 2011, end: 20130702
  3. VENTOLIN HFA [Concomitant]
     Indication: CHRONIC OBSTRUCTIVE PULMONARY DISEASE
     Dosage: FORMULATION: INHALATION SPRAY
     Route: 055
     Dates: start: 2011
  4. OMEPRAZOLE [Concomitant]
     Indication: GASTROOESOPHAGEAL REFLUX DISEASE
     Dosage: 40 MG
     Route: 048
     Dates: start: 201303
  5. NASONEX [Concomitant]
     Indication: SINUS CONGESTION
     Dosage: FORMULATION: NASAL SPRAY, STRENGTH: 2 SPRAYS; DAILY DOSE: 2 SPRAYS
     Route: 045
     Dates: start: 2011
  6. CETIRIZINE [Concomitant]
     Indication: SINUS CONGESTION
     Dosage: 10 MG
     Route: 048
     Dates: start: 2011

REACTIONS (3)
  - Dysgeusia [Recovered/Resolved]
  - Incorrect drug administration duration [Recovered/Resolved]
  - Product quality issue [Recovered/Resolved]
